FAERS Safety Report 17700350 (Version 3)
Quarter: 2020Q4

REPORT INFORMATION
  Report Type: Spontaneous
  Country: US (occurrence: US)
  Receive Date: 20200423
  Receipt Date: 20201117
  Transmission Date: 20210113
  Serious: Yes (Disabling)
  Sender: FDA-Public Use
  Company Number: US-ASTRAZENECA-2020SE52766

PATIENT
  Age: 22520 Day
  Sex: Female
  Weight: 75.8 kg

DRUGS (15)
  1. PEPCID XR [Concomitant]
  2. BUDESONIDE. [Concomitant]
     Active Substance: BUDESONIDE
  3. FASENRA [Suspect]
     Active Substance: BENRALIZUMAB
     Indication: ASTHMA
     Dosage: 30.0MG/ML UNKNOWN
     Route: 058
     Dates: start: 20200225, end: 20200721
  4. PERFOROMIST [Concomitant]
     Active Substance: FORMOTEROL FUMARATE DIHYDRATE
  5. ALBUTEROL. [Concomitant]
     Active Substance: ALBUTEROL
     Indication: ASTHMA
     Dates: start: 20200212
  6. DEXILANT [Concomitant]
     Active Substance: DEXLANSOPRAZOLE
     Indication: STEROID THERAPY
  7. ZOMIG [Concomitant]
     Active Substance: ZOLMITRIPTAN
  8. SPIRIVA RESPIMAT [Concomitant]
     Active Substance: TIOTROPIUM BROMIDE
  9. FASENRA [Suspect]
     Active Substance: BENRALIZUMAB
     Indication: ASTHMA
     Dosage: 30.0MG/ML UNKNOWN
     Route: 058
     Dates: start: 20200225, end: 20200721
  10. TIZANIDINE. [Concomitant]
     Active Substance: TIZANIDINE
  11. ALBUTEROL. [Concomitant]
     Active Substance: ALBUTEROL
  12. BUDESONIDE FORMOTEROL [Concomitant]
     Active Substance: BUDESONIDE
  13. TOPIRAMATE. [Concomitant]
     Active Substance: TOPIRAMATE
  14. AMLODIPINE [Concomitant]
     Active Substance: AMLODIPINE BESYLATE
  15. MONTELUKAST [Concomitant]
     Active Substance: MONTELUKAST SODIUM

REACTIONS (8)
  - Vision blurred [Recovered/Resolved]
  - Rash [Unknown]
  - Insomnia [Unknown]
  - Pruritus [Recovered/Resolved]
  - Hypersensitivity [Unknown]
  - Product dose omission issue [Unknown]
  - Anxiety [Unknown]
  - Irritable bowel syndrome [Unknown]

NARRATIVE: CASE EVENT DATE: 20200225
